FAERS Safety Report 4452099-4 (Version None)
Quarter: 2004Q3

REPORT INFORMATION
  Report Type: 
  Country: None (occurrence: None)
  Receive Date: 20040913
  Receipt Date: 20040721
  Transmission Date: 20050211
  Serious: No
  Sender: FDA-Public Use
  Company Number: 2004-BP-05980BP(0)

PATIENT
  Age: 75 Year
  Sex: Male

DRUGS (7)
  1. SPIRIVA [Suspect]
     Indication: CHRONIC OBSTRUCTIVE AIRWAYS DISEASE
     Dosage: 18 MCG (18 MCG), IH
  2. COMBIVENT [Suspect]
     Indication: CHRONIC OBSTRUCTIVE AIRWAYS DISEASE
     Dosage: (SEE TEXT,18MCG/103MCG), IH
  3. PROSCAR [Concomitant]
  4. HYTRIN [Concomitant]
  5. EFFEXOR [Concomitant]
  6. KLONOPIN [Concomitant]
  7. ISOSORBIDE (ISOSORBIDE) [Concomitant]

REACTIONS (2)
  - FATIGUE [None]
  - FEELING ABNORMAL [None]
